FAERS Safety Report 19902811 (Version 6)
Quarter: 2022Q3

REPORT INFORMATION
  Report Type: Report from Study
  Country: KR (occurrence: KR)
  Receive Date: 20211001
  Receipt Date: 20220812
  Transmission Date: 20221027
  Serious: Yes (Death, Hospitalization)
  Sender: FDA-Public Use
  Company Number: KR-CELLTRION INC.-2021KR013116

PATIENT

DRUGS (21)
  1. HERZUMA [Suspect]
     Active Substance: TRASTUZUMAB-PKRB
     Indication: Cholangiocarcinoma
     Dosage: 337.8 MG, Q2WEEKS
     Route: 042
     Dates: start: 20210916
  2. HERZUMA [Suspect]
     Active Substance: TRASTUZUMAB-PKRB
     Dosage: 202.4 MG
     Route: 042
     Dates: start: 20211013
  3. HERZUMA [Suspect]
     Active Substance: TRASTUZUMAB-PKRB
     Dosage: CYCLE 3 ANTI-CANCER TREATMENT
     Dates: start: 20211027
  4. OXALIPLATIN [Suspect]
     Active Substance: OXALIPLATIN
     Indication: Product used for unknown indication
     Dosage: 135 MG, Q2WEEKS
     Route: 042
     Dates: start: 20210916
  5. OXALIPLATIN [Suspect]
     Active Substance: OXALIPLATIN
     Dosage: 98 MG
     Route: 042
     Dates: start: 20211013
  6. OXALIPLATIN [Suspect]
     Active Substance: OXALIPLATIN
     Dosage: CYCLE 3 ANTI-CANCER TREATMENT
     Dates: start: 20211027
  7. LEUCOVORIN [Suspect]
     Active Substance: LEUCOVORIN
     Indication: Product used for unknown indication
     Dosage: 318 MG, Q2WEEKS
     Route: 042
     Dates: start: 20210916
  8. LEUCOVORIN [Suspect]
     Active Substance: LEUCOVORIN
     Dosage: 302 MG
     Route: 042
     Dates: start: 20211013
  9. LEUCOVORIN [Suspect]
     Active Substance: LEUCOVORIN
     Dosage: CYCLE 3 ANTI-CANCER TREATMENT
     Dates: start: 20211027
  10. FLUOROURACIL [Suspect]
     Active Substance: FLUOROURACIL
     Indication: Product used for unknown indication
     Dosage: 636 MG, Q2WEEKS
     Route: 042
     Dates: start: 20210916
  11. FLUOROURACIL [Suspect]
     Active Substance: FLUOROURACIL
     Dosage: CYCLE 3 ANTI-CANCER TREATMENT
     Dates: start: 20211027
  12. FLUOROURACIL [Suspect]
     Active Substance: FLUOROURACIL
     Indication: Product used for unknown indication
     Dosage: 3816 MG, Q2WEEKS
     Route: 042
     Dates: start: 20210916
  13. FLUOROURACIL [Suspect]
     Active Substance: FLUOROURACIL
     Dosage: 2869 MG
     Route: 042
     Dates: start: 20211013
  14. MEGESTROL ACETATE [Concomitant]
     Active Substance: MEGESTROL ACETATE
     Indication: Decreased appetite
     Dosage: 20 ML, QD
     Route: 048
     Dates: start: 20210406
  15. TAPOCIN [Concomitant]
     Indication: Pleural effusion
     Dosage: 400 MG, QD
     Route: 042
     Dates: start: 20210921, end: 20210929
  16. LENOGRASTIM [Concomitant]
     Active Substance: LENOGRASTIM
     Indication: Neutropenia
     Dosage: 250 MICROGRAM, QD
     Route: 058
     Dates: start: 20211001, end: 20211001
  17. PALONOSETRON HYDROCHLORIDE [Concomitant]
     Active Substance: PALONOSETRON HYDROCHLORIDE
     Indication: Prophylaxis
     Dosage: 0.25 MG, QD
     Route: 042
     Dates: start: 20210916, end: 20210916
  18. FUROSEMIDE [Concomitant]
     Active Substance: FUROSEMIDE
     Indication: Prophylaxis
     Dosage: 40 MG, QD
     Route: 042
     Dates: start: 20210918, end: 20210922
  19. MAGNESIUM SULFATE [Concomitant]
     Active Substance: MAGNESIUM SULFATE
     Indication: Prophylaxis
     Dosage: 20 ML, QD
     Route: 042
     Dates: start: 20210927, end: 20210927
  20. PIPERACILLIN SODIUM\TAZOBACTAM SODIUM [Concomitant]
     Active Substance: PIPERACILLIN SODIUM\TAZOBACTAM SODIUM
     Indication: Pleural effusion
     Dosage: 4.5 GRAM, TID
     Route: 042
     Dates: start: 20210919, end: 20210919
  21. PIPERACILLIN SODIUM\TAZOBACTAM SODIUM [Concomitant]
     Active Substance: PIPERACILLIN SODIUM\TAZOBACTAM SODIUM
     Dosage: 4.5 GRAM, QID
     Route: 042
     Dates: start: 20211027, end: 20211118

REACTIONS (4)
  - Disease progression [Fatal]
  - Pneumonia [Fatal]
  - Pleural effusion [Fatal]
  - Off label use [Unknown]

NARRATIVE: CASE EVENT DATE: 20210919
